FAERS Safety Report 17500216 (Version 2)
Quarter: 2020Q1

REPORT INFORMATION
  Report Type: Spontaneous
  Country: US (occurrence: US)
  Receive Date: 20200305
  Receipt Date: 20200325
  Transmission Date: 20200409
  Serious: Yes (Other)
  Sender: FDA-Public Use
  Company Number: US-HORIZON-PRO-0061-2020

PATIENT
  Age: 41 Year
  Sex: Male

DRUGS (2)
  1. CYSTARAN DROPS [Concomitant]
  2. PROCYSBI [Suspect]
     Active Substance: CYSTEAMINE BITARTRATE
     Indication: CYSTINOSIS
     Dosage: 1050MG (14 CAPS X 75MG) BY MOUTH BID BEFORE MEALS
     Route: 048
     Dates: start: 2015

REACTIONS (4)
  - Deposit eye [Recovering/Resolving]
  - Blindness [Not Recovered/Not Resolved]
  - Ocular deposits removal [Recovering/Resolving]
  - Corneal lesion [Unknown]

NARRATIVE: CASE EVENT DATE: 201910
